FAERS Safety Report 6854199-8 (Version None)
Quarter: 2010Q3

REPORT INFORMATION
  Report Type: 
  Country: None (occurrence: None)
  Receive Date: 20100717
  Receipt Date: 20071228
  Transmission Date: 20110219
  Serious: No
  Sender: FDA-Public Use
  Company Number: US-PFIZER INC-2008000785

PATIENT
  Sex: Female
  Weight: 81.8 kg

DRUGS (5)
  1. CHANTIX [Suspect]
     Indication: SMOKING CESSATION THERAPY
     Route: 048
     Dates: start: 20070801, end: 20070801
  2. METHOTREXATE [Concomitant]
  3. HUMIRA [Concomitant]
  4. ZOCOR [Concomitant]
  5. NEXIUM [Concomitant]
     Indication: DYSPEPSIA

REACTIONS (1)
  - NAUSEA [None]
